FAERS Safety Report 6643453-0 (Version None)
Quarter: 2010Q1

REPORT INFORMATION
  Report Type: 
  Country: None (occurrence: None)
  Receive Date: 20100319
  Receipt Date: 20100308
  Transmission Date: 20100710
  Serious: Yes (Other)
  Sender: FDA-Public Use
  Company Number: US-WATSON-2010-02831

PATIENT
  Age: 27 Year
  Sex: Female

DRUGS (1)
  1. NORCO (UNKNOWN) (WATSON LABORATORIES) [Suspect]
     Indication: PAIN
     Dosage: 7.5/500 MG TID

REACTIONS (2)
  - DRUG ABUSE [None]
  - FISTULA [None]
